FAERS Safety Report 5700222-3 (Version None)
Quarter: 2008Q2

REPORT INFORMATION
  Report Type: 
  Country: None (occurrence: None)
  Receive Date: 20080409
  Receipt Date: 20080403
  Transmission Date: 20081010
  Serious: Yes (Other)
  Sender: FDA-Public Use
  Company Number: US-JNJFOC-20080401663

PATIENT
  Sex: Female

DRUGS (1)
  1. ORTHO-NOVUM 1/50 21 [Suspect]
     Indication: CONTRACEPTION

REACTIONS (1)
  - COELIAC DISEASE [None]
